FAERS Safety Report 21226996 (Version 1)
Quarter: 2022Q3

REPORT INFORMATION
  Report Type: Spontaneous
  Country: US (occurrence: None)
  Receive Date: 20220817
  Receipt Date: 20220817
  Transmission Date: 20221027
  Serious: Yes (Other)
  Sender: FDA-Public Use
  Company Number: None

PATIENT
  Sex: Male

DRUGS (5)
  1. HEMLIBRA [Suspect]
     Active Substance: EMICIZUMAB-KXWH
     Indication: Factor VIII deficiency
     Dosage: OTHER QUANTITY : 105MG/0.7ML;?
     Route: 058
     Dates: start: 20220604
  2. ELOCTATE [Concomitant]
     Active Substance: (1-743)-(1638-2332)-BLOOD-COAGULATION FACTOR VIII (SYNTHETIC HUMAN) FUSION PROTEIN WITH IMMUNOGLOBUL
  3. LEXAPRO TAB [Concomitant]
  4. SOD CHL FLSH [Concomitant]
  5. SOD CHL STRL FLSH [Concomitant]

REACTIONS (1)
  - Vertigo [None]
